FAERS Safety Report 13835254 (Version 1)
Quarter: 2017Q3

REPORT INFORMATION
  Report Type: Spontaneous
  Country: FI (occurrence: FI)
  Receive Date: 20170804
  Receipt Date: 20170804
  Transmission Date: 20171127
  Serious: Yes (Hospitalization)
  Sender: FDA-Public Use
  Company Number: FI-ACCORD-056834

PATIENT
  Age: 44 Year
  Sex: Female

DRUGS (11)
  1. PANADOL NOVUM [Concomitant]
     Route: 048
  2. DOCETAXEL ACCORD [Suspect]
     Active Substance: DOCETAXEL
     Indication: BREAST CANCER
     Route: 042
     Dates: start: 20170330
  3. ORGAMETRIL [Concomitant]
     Active Substance: LYNESTRENOL
     Route: 048
     Dates: end: 20170410
  4. DOLAN [Concomitant]
     Active Substance: ACETAMINOPHEN\ORPHENADRINE CITRATE
     Route: 048
  5. MELATONIN VITABALANS [Concomitant]
     Route: 048
  6. ZARZIO [Concomitant]
     Active Substance: FILGRASTIM
     Dates: end: 20170408
  7. LEVOLAC [Concomitant]
     Active Substance: LACTULOSE
     Route: 048
  8. KETIPINOR [Concomitant]
     Active Substance: QUETIAPINE FUMARATE
     Route: 048
     Dates: end: 20170406
  9. LAXOBERON [Concomitant]
     Active Substance: SODIUM PICOSULFATE
     Route: 048
  10. PEGORION [Concomitant]
     Active Substance: POLYETHYLENE GLYCOL 4000
     Route: 048
  11. TEMESTA [Concomitant]
     Active Substance: LORAZEPAM
     Route: 048

REACTIONS (6)
  - Neutropenia [Recovering/Resolving]
  - Leukopenia [Recovering/Resolving]
  - C-reactive protein increased [Recovering/Resolving]
  - Pyrexia [Recovering/Resolving]
  - Dermatitis acneiform [Unknown]
  - Constipation [Recovering/Resolving]

NARRATIVE: CASE EVENT DATE: 20170404
